FAERS Safety Report 17304981 (Version 4)
Quarter: 2020Q1

REPORT INFORMATION
  Report Type: Spontaneous
  Country: DE (occurrence: DE)
  Receive Date: 20200122
  Receipt Date: 20200302
  Transmission Date: 20200409
  Serious: Yes (Other)
  Sender: FDA-Public Use
  Company Number: DE-ALLERGAN-2002345US

PATIENT
  Sex: Male
  Weight: 93 kg

DRUGS (4)
  1. SILODOSIN - BP [Interacting]
     Active Substance: SILODOSIN
     Dosage: 1 DF, QPM
     Route: 048
     Dates: start: 20200107, end: 20200107
  2. DIGITALIS [Interacting]
     Active Substance: DIGITALIS
     Indication: PRODUCT USED FOR UNKNOWN INDICATION
     Dosage: FOR SEVERAL DAYS
     Route: 048
     Dates: start: 202001, end: 202001
  3. SILODOSIN - BP [Interacting]
     Active Substance: SILODOSIN
     Dosage: 1 DF, QD
     Route: 048
     Dates: start: 20191228, end: 20200101
  4. SILODOSIN - BP [Suspect]
     Active Substance: SILODOSIN
     Indication: BENIGN PROSTATIC HYPERPLASIA
     Dosage: 1 DF, QD
     Route: 048
     Dates: start: 20200110, end: 20200110

REACTIONS (4)
  - Arrhythmia [Recovering/Resolving]
  - Restlessness [Recovering/Resolving]
  - Erythema [Recovering/Resolving]
  - Drug interaction [Unknown]

NARRATIVE: CASE EVENT DATE: 202001
